FAERS Safety Report 21395450 (Version 1)
Quarter: 2022Q3

REPORT INFORMATION
  Report Type: Spontaneous
  Country: US (occurrence: US)
  Receive Date: 20220930
  Receipt Date: 20220930
  Transmission Date: 20221026
  Serious: No
  Sender: FDA-Public Use
  Company Number: US-UNITED THERAPEUTICS-UNT-2022-022565

PATIENT
  Sex: Female
  Weight: 12.971 kg

DRUGS (2)
  1. REMODULIN [Suspect]
     Active Substance: TREPROSTINIL
     Indication: Pulmonary arterial hypertension
     Dosage: UNK, CONTINUING
     Route: 058
     Dates: start: 20201222
  2. REMODULIN [Suspect]
     Active Substance: TREPROSTINIL
     Dosage: 0.0303 ?G/KG, CONTINUING
     Route: 058

REACTIONS (1)
  - Infusion site injury [Unknown]
